FAERS Safety Report 8174431-0 (Version None)
Quarter: 2012Q1

REPORT INFORMATION
  Report Type: 
  Country: None (occurrence: None)
  Receive Date: 20120229
  Receipt Date: 20120228
  Transmission Date: 20120608
  Serious: Yes (Hospitalization, Disabling)
  Sender: FDA-Public Use
  Company Number: GB-EISAI INC-E2090-01985-SPO-GB

PATIENT
  Age: 14 Month
  Sex: Female
  Weight: 10 kg

DRUGS (2)
  1. PHENYTOIN SODIUM [Concomitant]
     Route: 048
     Dates: start: 20110702
  2. ZONEGRAN [Suspect]
     Dosage: 60 MG
     Route: 048
     Dates: start: 20110902

REACTIONS (2)
  - RESPIRATORY DISORDER [None]
  - SOMNOLENCE [None]
